FAERS Safety Report 9031891 (Version 1)
Quarter: 2013Q1

REPORT INFORMATION
  Report Type: Spontaneous
  Country: US (occurrence: US)
  Receive Date: 20130125
  Receipt Date: 20130125
  Transmission Date: 20140127
  Serious: No
  Sender: FDA-Public Use
  Company Number: US-TARO-2012P1059840

PATIENT
  Sex: Female

DRUGS (1)
  1. TOPICORT [Suspect]

REACTIONS (2)
  - Glossodynia [Unknown]
  - Hypersensitivity [Unknown]
